FAERS Safety Report 11911148 (Version 1)
Quarter: 2016Q1

REPORT INFORMATION
  Report Type: Spontaneous
  Country: FR (occurrence: FR)
  Receive Date: 20160112
  Receipt Date: 20160112
  Transmission Date: 20160526
  Serious: Yes (Hospitalization)
  Sender: FDA-Public Use
  Company Number: FR-TEVA-623373ISR

PATIENT
  Age: 24 Year
  Sex: Female

DRUGS (2)
  1. LEELOO 0.1 MG/ 0.02 MG [Suspect]
     Active Substance: ETHINYL ESTRADIOL\LEVONORGESTREL
     Indication: ORAL CONTRACEPTION
     Dosage: 1 DF = ETHINYLESTRADIOL 0.02 MG + LEVONORGESTREL 0.1 MG
     Route: 048
     Dates: end: 201510
  2. DERMOVAL [Concomitant]
     Active Substance: CLOBETASOL
     Indication: ECZEMA
     Dosage: 1.5 TUBE PER MONTH

REACTIONS (3)
  - Haematoma [Recovered/Resolved]
  - Migraine with aura [Recovered/Resolved]
  - Hemianopia [Recovered/Resolved]

NARRATIVE: CASE EVENT DATE: 201508
